FAERS Safety Report 17350619 (Version 1)
Quarter: 2020Q1

REPORT INFORMATION
  Report Type: Spontaneous
  Country: DK (occurrence: DK)
  Receive Date: 20200130
  Receipt Date: 20200130
  Transmission Date: 20200409
  Serious: Yes (Life-Threatening, Hospitalization)
  Sender: FDA-Public Use
  Company Number: DK-B.I. PHARMACEUTICALS,INC./RIDGEFIELD-2020-12-005146

PATIENT
  Age: 35 Year
  Sex: Female

DRUGS (6)
  1. PANODIL [Concomitant]
     Active Substance: ACETAMINOPHEN
     Indication: PAIN
     Dosage: STYRKE: 500 MG, DOSIS: 2 BRUSETABLETTER EFTER BEHOV H?JST 4 GANGE DAGLIG
     Route: 048
     Dates: start: 201206
  2. ATORVASTATIN [Concomitant]
     Active Substance: ATORVASTATIN
     Indication: HYPERCHOLESTEROLAEMIA
     Dosage: STYRKE: 40 MG
     Route: 048
     Dates: start: 201410
  3. JARDIANCE [Suspect]
     Active Substance: EMPAGLIFLOZIN
     Indication: TYPE 2 DIABETES MELLITUS
     Dosage: STYRKE: 10 MG
     Route: 048
     Dates: start: 201910, end: 20200102
  4. DERMOVAT [CLOBETASOL PROPIONATE] [Concomitant]
     Indication: ECZEMA
     Dosage: STYRKE: 0.5 MG/G, DOSIS: UDVORTES 2 GANGE DAGLIG I PERIODER EFTER AFTALE
     Route: 065
     Dates: start: 20120508
  5. NOVOMIX [Concomitant]
     Active Substance: INSULIN ASPART
     Indication: DIABETES MELLITUS
     Dosage: STYRKE: 100 E/ML.
     Route: 065
     Dates: start: 201103, end: 202001
  6. BRENTACORT [Concomitant]
     Indication: ECZEMA
     Dosage: STYRKE: 20+10 MG/G, DOSIS: 2 GANGE DAGLIGT FORTS?T EN UGER EFTER AT DET V?K
     Route: 065

REACTIONS (1)
  - Ketoacidosis [Recovered/Resolved]

NARRATIVE: CASE EVENT DATE: 20200102
